FAERS Safety Report 4705743-8 (Version None)
Quarter: 2005Q3

REPORT INFORMATION
  Report Type: 
  Country: None (occurrence: None)
  Receive Date: 20050701
  Receipt Date: 20030102
  Transmission Date: 20060218
  Serious: Yes (Disabling)
  Sender: FDA-Public Use
  Company Number: US-MERCK-0301USA00111

PATIENT
  Age: 45 Year
  Sex: Female

DRUGS (9)
  1. VIOXX [Suspect]
     Indication: OSTEOARTHRITIS
     Route: 048
     Dates: start: 19990101, end: 20040101
  2. VIOXX [Suspect]
     Route: 048
     Dates: start: 20000401, end: 20040101
  3. ULTRAM [Concomitant]
     Route: 065
  4. LASIX [Concomitant]
     Route: 065
  5. PRILOSEC [Concomitant]
     Route: 065
  6. CLONIDINE [Concomitant]
     Route: 065
  7. ACETAMINOPHEN AND HYDROCODONE BITARTRATE [Concomitant]
     Route: 065
  8. TIZANIDINE [Concomitant]
     Route: 065
  9. PREMARIN [Concomitant]
     Route: 065

REACTIONS (22)
  - BACK PAIN [None]
  - CHEST PAIN [None]
  - DIARRHOEA [None]
  - DRUG EFFECT DECREASED [None]
  - DYSPEPSIA [None]
  - FUNGAL INFECTION [None]
  - GASTRIC DISORDER [None]
  - HAEMATURIA [None]
  - KNEE ARTHROPLASTY [None]
  - MALIGNANT HYPERTENSION [None]
  - NEPHROLITHIASIS [None]
  - NERVE INJURY [None]
  - OEDEMA PERIPHERAL [None]
  - OSTEOARTHRITIS [None]
  - RASH GENERALISED [None]
  - RENAL CYST [None]
  - RENAL PAIN [None]
  - SWELLING FACE [None]
  - THROMBOSIS [None]
  - TRANSIENT ISCHAEMIC ATTACK [None]
  - URINARY TRACT INFECTION [None]
  - VAGINAL HAEMORRHAGE [None]
